FAERS Safety Report 4404334-6 (Version None)
Quarter: 2004Q3

REPORT INFORMATION
  Report Type: 
  Country: None (occurrence: None)
  Receive Date: 20040714
  Receipt Date: 20040617
  Transmission Date: 20050211
  Serious: No
  Sender: FDA-Public Use
  Company Number: CART-10346

PATIENT
  Age: 37 Year
  Sex: Male
  Weight: 86.1834 kg

DRUGS (1)
  1. CARTICEL [Suspect]
     Indication: KNEE DEFORMITY
     Dosage: 1NA ONCE IS
     Dates: start: 20010508, end: 20010508

REACTIONS (8)
  - ARTHRALGIA [None]
  - DISCOMFORT [None]
  - FRACTURE TREATMENT [None]
  - GRAFT COMPLICATION [None]
  - GRAFT OVERGROWTH [None]
  - LOOSE BODY IN JOINT [None]
  - PAIN [None]
  - SWELLING [None]
